FAERS Safety Report 9495335 (Version 1)
Quarter: 2013Q3

REPORT INFORMATION
  Report Type: Spontaneous
  Country: US (occurrence: US)
  Receive Date: 20130903
  Receipt Date: 20130903
  Transmission Date: 20140515
  Serious: Yes (Hospitalization)
  Sender: FDA-Public Use
  Company Number: US-GLAXOSMITHKLINE-A1039539A

PATIENT
  Age: 61 Year
  Sex: Female

DRUGS (8)
  1. ADVAIR [Suspect]
     Indication: CHRONIC OBSTRUCTIVE PULMONARY DISEASE
     Dosage: 1PUFF TWICE PER DAY
     Route: 055
     Dates: start: 20130422
  2. METOPROLOL [Concomitant]
  3. ASPIRIN [Concomitant]
  4. LIPITOR [Concomitant]
  5. DILTIAZEM [Concomitant]
  6. LISINOPRIL [Concomitant]
  7. DOXYCYCLINE [Concomitant]
  8. STEROID [Concomitant]

REACTIONS (6)
  - Myocardial infarction [Recovering/Resolving]
  - Dyspnoea [Recovering/Resolving]
  - Pain in jaw [Recovering/Resolving]
  - Chronic obstructive pulmonary disease [Recovering/Resolving]
  - Nasopharyngitis [Recovering/Resolving]
  - Drug administration error [Unknown]
